FAERS Safety Report 9868426 (Version 5)
Quarter: 2015Q1

REPORT INFORMATION
  Report Type: Report from Study
  Country: US (occurrence: US)
  Receive Date: 20140204
  Receipt Date: 20150128
  Transmission Date: 20150721
  Serious: Yes (Hospitalization)
  Sender: FDA-Public Use
  Company Number: US-SA-2013SA123243

PATIENT
  Age: 64 Year
  Sex: Female
  Weight: 109 kg

DRUGS (12)
  1. IPRATROPIUM [Concomitant]
     Active Substance: IPRATROPIUM
     Dosage: DOSE:2 UNIT(S)
     Route: 045
     Dates: start: 2009
  2. LOSARTAN [Concomitant]
     Active Substance: LOSARTAN
     Route: 048
     Dates: start: 2012
  3. KLOR-CON [Concomitant]
     Active Substance: POTASSIUM CHLORIDE
     Route: 048
     Dates: start: 2008
  4. TERIFLUNOMIDE [Suspect]
     Active Substance: TERIFLUNOMIDE
     Indication: MULTIPLE SCLEROSIS RELAPSE
     Route: 048
     Dates: start: 20131021
  5. TOPAMAX [Concomitant]
     Active Substance: TOPIRAMATE
     Route: 048
     Dates: start: 2009
  6. ROZEREM [Concomitant]
     Active Substance: RAMELTEON
     Route: 048
     Dates: start: 20090929, end: 20131120
  7. ESTROGENS [Concomitant]
     Active Substance: ESTROGENS
     Route: 048
     Dates: start: 2010
  8. LEVOTHYROXINE [Concomitant]
     Active Substance: LEVOTHYROXINE
     Route: 048
     Dates: start: 1972
  9. LASIX [Concomitant]
     Active Substance: FUROSEMIDE
     Route: 048
     Dates: start: 2008
  10. DICLOFENAC POTASSIUM. [Concomitant]
     Active Substance: DICLOFENAC POTASSIUM
     Route: 048
     Dates: start: 2012
  11. ALBUTEROL. [Concomitant]
     Active Substance: ALBUTEROL
     Route: 045
     Dates: start: 2010
  12. CLONAZEPAM. [Concomitant]
     Active Substance: CLONAZEPAM
     Route: 048
     Dates: start: 20101027

REACTIONS (3)
  - Oesophageal candidiasis [Recovered/Resolved]
  - Hiatus hernia [Recovered/Resolved]
  - Atelectasis [Recovered/Resolved]

NARRATIVE: CASE EVENT DATE: 20131029
